FAERS Safety Report 8170237-7 (Version None)
Quarter: 2012Q1

REPORT INFORMATION
  Report Type: 
  Country: None (occurrence: None)
  Receive Date: 20120228
  Receipt Date: 20120222
  Transmission Date: 20120608
  Serious: Yes (Hospitalization)
  Sender: FDA-Public Use
  Company Number: PHHY2012TR015506

PATIENT
  Sex: Female
  Weight: 85 kg

DRUGS (1)
  1. ZOLEDRONOC ACID [Suspect]
     Indication: OSTEOPOROSIS
     Dosage: 5 MG, UNK
     Route: 042
     Dates: start: 20120209

REACTIONS (6)
  - DIARRHOEA [None]
  - DIZZINESS [None]
  - VOMITING [None]
  - NAUSEA [None]
  - FALL [None]
  - ABDOMINAL PAIN [None]
